FAERS Safety Report 9858281 (Version 1)
Quarter: 2014Q1

REPORT INFORMATION
  Report Type: Spontaneous
  Country: US (occurrence: None)
  Receive Date: 20140130
  Receipt Date: 20140130
  Transmission Date: 20141002
  Serious: Yes (Disabling)
  Sender: FDA-Public Use
  Company Number: None

PATIENT
  Age: 50 Year
  Sex: Female
  Weight: 81.65 kg

DRUGS (1)
  1. ZOLPIDEM 10MG TEVA [Suspect]
     Indication: SLEEP APNOEA SYNDROME
     Dosage: TAKEN BY MOUTH
     Dates: start: 20140101, end: 20140129

REACTIONS (6)
  - Somnambulism [None]
  - Abnormal sleep-related event [None]
  - Sleep-related eating disorder [None]
  - Somnambulism [None]
  - Memory impairment [None]
  - Weight increased [None]
